FAERS Safety Report 10267111 (Version 1)
Quarter: 2014Q2

REPORT INFORMATION
  Report Type: Spontaneous
  Country: US (occurrence: None)
  Receive Date: 20140625
  Receipt Date: 20140625
  Transmission Date: 20141212
  Serious: Yes (Disabling)
  Sender: FDA-Public Use
  Company Number: None

PATIENT
  Age: 52 Year
  Sex: Female
  Weight: 64.41 kg

DRUGS (1)
  1. CIPROFLAXIN 500 MG [Suspect]
     Indication: COLITIS
     Dosage: 1 PILLS, TWICE DAILY, TAKEN BY MOUTH
     Route: 048
     Dates: start: 20131224, end: 20140102

REACTIONS (14)
  - Musculoskeletal pain [None]
  - Nightmare [None]
  - Anxiety [None]
  - Insomnia [None]
  - Arthralgia [None]
  - Tendon pain [None]
  - Arthralgia [None]
  - Vision blurred [None]
  - Diarrhoea [None]
  - Alopecia [None]
  - Gingival bleeding [None]
  - Visual acuity reduced [None]
  - Arthralgia [None]
  - Exercise tolerance decreased [None]
